FAERS Safety Report 23103214 (Version 1)
Quarter: 2023Q4

REPORT INFORMATION
  Report Type: Spontaneous
  Country: US (occurrence: None)
  Receive Date: 20231024
  Receipt Date: 20231024
  Transmission Date: 20240109
  Serious: Yes (Life-Threatening, Hospitalization, Disabling)
  Sender: FDA-Public Use
  Company Number: None

PATIENT
  Age: 43 Year
  Sex: Female
  Weight: 74.25 kg

DRUGS (6)
  1. ACTEMRA [Suspect]
     Active Substance: TOCILIZUMAB
     Indication: Rheumatoid arthritis
     Dosage: OTHER FREQUENCY : MONTHLY INFUSIONS;?
     Route: 042
     Dates: start: 20220829, end: 20230515
  2. Omnipod 5 Insulin Delivery System [Concomitant]
  3. Dexcom G6 glucose monitoring system [Concomitant]
  4. UNSPECIFIED INGREDIENT [Concomitant]
     Active Substance: UNSPECIFIED INGREDIENT
  5. Clonazepam as needed [Concomitant]
  6. GABAPENTIN [Concomitant]
     Active Substance: GABAPENTIN

REACTIONS (26)
  - Palpitations [None]
  - Infusion related reaction [None]
  - Palpitations [None]
  - Tinnitus [None]
  - Tachycardia [None]
  - Paraesthesia [None]
  - Piloerection [None]
  - Syncope [None]
  - Sinusitis [None]
  - Lymphadenopathy [None]
  - Loss of personal independence in daily activities [None]
  - Anxiety [None]
  - Depression [None]
  - Panic attack [None]
  - Chest pain [None]
  - Mood swings [None]
  - Suicidal ideation [None]
  - Swelling of eyelid [None]
  - Pain in extremity [None]
  - Toothache [None]
  - Gait disturbance [None]
  - Back pain [None]
  - Sciatica [None]
  - Neuropathy peripheral [None]
  - Blood pressure increased [None]
  - Disturbance in attention [None]

NARRATIVE: CASE EVENT DATE: 20230403
